FAERS Safety Report 7774295-0 (Version None)
Quarter: 2011Q3

REPORT INFORMATION
  Report Type: 
  Country: None (occurrence: None)
  Receive Date: 20110923
  Receipt Date: 20110913
  Transmission Date: 20111222
  Serious: Yes (Hospitalization)
  Sender: FDA-Public Use
  Company Number: ES-ABBOTT-11P-144-0851145-01

PATIENT
  Age: 44 Year
  Sex: Female

DRUGS (9)
  1. HUMIRA [Suspect]
     Route: 058
     Dates: end: 20100105
  2. AMOXICILLIN AND CLAVULANATE POTASSIUM [Concomitant]
     Indication: POSTOPERATIVE WOUND INFECTION
     Dates: start: 20090722
  3. CELEBREX [Concomitant]
     Indication: ARTHRALGIA
     Dates: start: 20100702
  4. HUMIRA [Suspect]
     Route: 058
     Dates: end: 20090201
  5. PREDNISONE [Concomitant]
     Indication: CROHN'S DISEASE
  6. HUMIRA [Suspect]
     Indication: CROHN'S DISEASE
     Route: 058
     Dates: start: 20081030, end: 20081030
  7. HUMIRA [Suspect]
     Route: 058
     Dates: start: 20091120, end: 20091120
  8. COLESTID [Concomitant]
     Indication: LACTOSE INTOLERANCE
     Dosage: 1 BAG TWICE DAILY
     Dates: start: 20100702
  9. HUMIRA [Suspect]
     Route: 058

REACTIONS (9)
  - ABDOMINAL PAIN [None]
  - MUCOUS STOOLS [None]
  - HYPERSENSITIVITY [None]
  - CHANGE OF BOWEL HABIT [None]
  - DECREASED APPETITE [None]
  - PYREXIA [None]
  - TUBERCULIN TEST POSITIVE [None]
  - DRUG INEFFECTIVE [None]
  - COUGH [None]
